FAERS Safety Report 7785405-3 (Version None)
Quarter: 2011Q3

REPORT INFORMATION
  Report Type: 
  Country: None (occurrence: None)
  Receive Date: 20110929
  Receipt Date: 20110923
  Transmission Date: 20111222
  Serious: Yes (Death, Life-Threatening, Hospitalization)
  Sender: FDA-Public Use
  Company Number: US-CELGENEUS-163-21880-11022138

PATIENT
  Sex: Female
  Weight: 57.15 kg

DRUGS (3)
  1. ANTIBIOTICS [Concomitant]
  2. REVLIMID [Suspect]
     Indication: MULTIPLE MYELOMA
     Dosage: 15 MILLIGRAM
     Route: 048
     Dates: start: 20110208
  3. ANTIBIOTICS [Concomitant]
     Route: 065
     Dates: start: 20110401

REACTIONS (3)
  - GASTROINTESTINAL HAEMORRHAGE [None]
  - PNEUMONIA STAPHYLOCOCCAL [None]
  - MULTIPLE MYELOMA [None]
